FAERS Safety Report 23308217 (Version 1)
Quarter: 2023Q4

REPORT INFORMATION
  Report Type: Spontaneous
  Country: EG (occurrence: EG)
  Receive Date: 20231218
  Receipt Date: 20231218
  Transmission Date: 20240109
  Serious: Yes (Death)
  Sender: FDA-Public Use
  Company Number: EG-PFIZER INC-PV202300204079

PATIENT
  Age: 77 Year
  Sex: Female

DRUGS (5)
  1. IBRANCE [Suspect]
     Active Substance: PALBOCICLIB
     Indication: Breast cancer metastatic
     Dosage: ONCE DAILY FOR 21 DAYS FOLLOWED BY 7 DAYS OFF TREATMENT
     Route: 048
  2. FEMARA [Concomitant]
     Active Substance: LETROZOLE
     Dosage: 1 DF, DAILY
  3. OSTEOCARE [CALCIUM;COLECALCIFEROL;MAGNESIUM;ZINC] [Concomitant]
     Dosage: 1 DF, DAILY
  4. VIT D [VITAMIN D NOS] [Concomitant]
     Dosage: 1 DF, 2X/WEEK
  5. PROLIA [Concomitant]
     Active Substance: DENOSUMAB
     Dosage: ONE VIAL EVERY 6 MONTHS
     Route: 058

REACTIONS (1)
  - Death [Fatal]
